FAERS Safety Report 13141835 (Version 3)
Quarter: 2017Q1

REPORT INFORMATION
  Report Type: Spontaneous
  Country: US (occurrence: US)
  Receive Date: 20170124
  Receipt Date: 20170228
  Transmission Date: 20170428
  Serious: Yes (Life-Threatening, Hospitalization, Disabling)
  Sender: FDA-Public Use
  Company Number: PHEH2017US002311

PATIENT
  Age: 58 Year
  Sex: Male
  Weight: 88.44 kg

DRUGS (4)
  1. COSENTYX [Suspect]
     Active Substance: SECUKINUMAB
     Dosage: 150 MG, QMO
     Route: 065
     Dates: start: 20160618, end: 20160818
  2. COSENTYX [Suspect]
     Active Substance: SECUKINUMAB
     Indication: ACQUIRED IMMUNODEFICIENCY SYNDROME
     Dosage: 300 MG, QMO EVERY 4 WEEKS
     Route: 058
     Dates: start: 20160413
  3. COSENTYX [Suspect]
     Active Substance: SECUKINUMAB
     Indication: PSORIASIS
     Dosage: UNK
     Route: 065
     Dates: start: 20160302
  4. COSENTYX [Suspect]
     Active Substance: SECUKINUMAB
     Dosage: UNK
     Route: 065
     Dates: start: 20160916, end: 20160916

REACTIONS (2)
  - Neoplasm skin [Unknown]
  - Apparent death [Unknown]

NARRATIVE: CASE EVENT DATE: 20161018
